FAERS Safety Report 20172456 (Version 1)
Quarter: 2021Q4

REPORT INFORMATION
  Report Type: Report from Study
  Country: US (occurrence: US)
  Receive Date: 20211210
  Receipt Date: 20211210
  Transmission Date: 20220303
  Serious: Yes (Hospitalization)
  Sender: FDA-Public Use
  Company Number: US-JCAR017-FOL-001-1041002-20200928-0001SG

PATIENT
  Age: 73 Year
  Sex: Male
  Weight: 76 kg

DRUGS (18)
  1. LISOCABTAGENE MARALEUCEL [Suspect]
     Active Substance: LISOCABTAGENE MARALEUCEL
     Indication: Follicular lymphoma
     Dosage: 100 X 10^6 CAR+ T CELLS X ONCE
     Route: 041
     Dates: start: 20200922, end: 20200922
  2. CYCLOPHOSPHAMIDE [Suspect]
     Active Substance: CYCLOPHOSPHAMIDE
     Indication: Follicular lymphoma
     Dosage: 580 MG X ONCE
     Route: 041
     Dates: start: 20200916, end: 20200916
  3. CYCLOPHOSPHAMIDE [Suspect]
     Active Substance: CYCLOPHOSPHAMIDE
     Dosage: 580 MG X ONCE
     Route: 041
     Dates: start: 20200917, end: 20200917
  4. CYCLOPHOSPHAMIDE [Suspect]
     Active Substance: CYCLOPHOSPHAMIDE
     Dosage: 580 MG X ONCE
     Route: 041
     Dates: start: 20200918, end: 20200918
  5. FLUDARABINE [Suspect]
     Active Substance: FLUDARABINE PHOSPHATE
     Indication: Follicular lymphoma
     Dosage: 58.75 MG X ONCE
     Route: 041
     Dates: start: 20200916, end: 20200916
  6. FLUDARABINE [Suspect]
     Active Substance: FLUDARABINE PHOSPHATE
     Dosage: 58.75 MG X ONCE
     Route: 041
     Dates: start: 20200917, end: 20200917
  7. FLUDARABINE [Suspect]
     Active Substance: FLUDARABINE PHOSPHATE
     Dosage: 58.75 MG X ONCE
     Route: 041
     Dates: start: 20200918, end: 20200918
  8. CEFEPIME [Concomitant]
     Active Substance: CEFEPIME HYDROCHLORIDE
     Indication: Prophylaxis
     Dosage: 1,000 MG X 1 X 12 HOURS
     Route: 042
     Dates: start: 20200928, end: 20200929
  9. DIPHENHYDRAMINE (BENADRYL) [Concomitant]
     Indication: Pruritus
     Dosage: 50 MG/DOSE X ONCE
     Route: 048
     Dates: start: 20200728
  10. LOVENOX [Concomitant]
     Active Substance: ENOXAPARIN SODIUM
     Indication: Prophylaxis
     Dosage: 80 MG X 1 X 12 HOURS
     Route: 058
     Dates: start: 20200921, end: 20201006
  11. PEPCID [Concomitant]
     Active Substance: FAMOTIDINE
     Indication: Prophylaxis
     Dosage: 20 MG X 2 X 1 DAYS
     Route: 048
     Dates: start: 20200922, end: 20201006
  12. LACTULOSE [Concomitant]
     Active Substance: LACTULOSE
     Indication: Prophylaxis
     Dosage: 10 G X PRN
     Route: 048
     Dates: start: 20200925, end: 20201006
  13. KEPPRA [Concomitant]
     Active Substance: LEVETIRACETAM
     Indication: Prophylaxis
     Dosage: 500 MG X 1 X 1 DAYS
     Route: 048
     Dates: start: 20200922, end: 20201006
  14. LEVAQUIN [Concomitant]
     Active Substance: LEVOFLOXACIN
     Indication: Prophylaxis
     Dosage: 750 MG X 1 X 24 HOURS
     Route: 048
     Dates: start: 20200930, end: 20201006
  15. LEVOTHYROXINE (SYNTHROID, LEVOTHROID) [Concomitant]
     Indication: Hypothyroidism
     Dosage: 150 MG X 1 X 1 DAYS
     Route: 048
     Dates: start: 20030210
  16. PENTAMADINE [Concomitant]
     Indication: Prophylaxis
     Dosage: 4 MG X 1 X 1 DAYS
     Route: 017
     Dates: start: 20200920, end: 20200920
  17. VALACYCLOVIC ( VALTREX ) [Concomitant]
     Indication: Prophylaxis
     Dosage: 500 MG X 2 X 1 DAYS
     Route: 048
     Dates: start: 20201001
  18. VANCOMYCIN [Concomitant]
     Active Substance: VANCOMYCIN
     Indication: Prophylaxis
     Dosage: 2,000 MG X 1 X 12 HOURS
     Route: 042
     Dates: start: 20200928, end: 20200929

REACTIONS (2)
  - Neurotoxicity [Recovered/Resolved]
  - Cytokine release syndrome [Recovered/Resolved]

NARRATIVE: CASE EVENT DATE: 20200928
